FAERS Safety Report 6202113-0 (Version None)
Quarter: 2009Q2

REPORT INFORMATION
  Report Type: 
  Country: None (occurrence: None)
  Receive Date: 20090518
  Receipt Date: 20090325
  Transmission Date: 20091009
  Serious: No
  Sender: FDA-Public Use
  Company Number: WAES 0903USA04741

PATIENT
  Age: 68 Year
  Sex: Female

DRUGS (8)
  1. JANUVIA [Suspect]
     Indication: TYPE 2 DIABETES MELLITUS
     Dosage: 100 MG/DAILY/PO
     Route: 048
     Dates: start: 20080101
  2. DIOVAN [Concomitant]
  3. LASIX [Concomitant]
  4. LIPITOR [Concomitant]
  5. NOVOLOG [Concomitant]
  6. PROTONA [Concomitant]
  7. CLONIDINE [Concomitant]
  8. METOPROLOL SUCCINATE [Concomitant]

REACTIONS (5)
  - ABDOMINAL DISCOMFORT [None]
  - ABDOMINAL PAIN [None]
  - CONSTIPATION [None]
  - DIARRHOEA [None]
  - NAUSEA [None]
